FAERS Safety Report 9604785 (Version 2)
Quarter: 2013Q4

REPORT INFORMATION
  Report Type: Spontaneous
  Country: None (occurrence: US)
  Receive Date: 20131008
  Receipt Date: 20131107
  Transmission Date: 20140711
  Serious: Yes (Other)
  Sender: FDA-Public Use
  Company Number: US-TEVA-436504USA

PATIENT
  Age: 76 Year
  Sex: Male

DRUGS (8)
  1. AZILECT [Suspect]
     Route: 048
  2. VITAMIN D3 [Concomitant]
  3. ASA [Concomitant]
     Dosage: 81 MG, FREQUENCY UNSPECIFIED
  4. ALEVE [Concomitant]
  5. NAMENDA [Concomitant]
  6. MOM [Concomitant]
  7. CARBIDOPA W/LEVODOPA [Concomitant]
  8. MIRALAX [Concomitant]

REACTIONS (4)
  - Macroglossia [Recovered/Resolved]
  - Dyskinesia [Recovering/Resolving]
  - Dyskinesia [Recovering/Resolving]
  - Tongue oedema [Recovered/Resolved]
